FAERS Safety Report 23089908 (Version 2)
Quarter: 2023Q4

REPORT INFORMATION
  Report Type: Other
  Country: US (occurrence: US)
  Receive Date: 20231020
  Receipt Date: 20231110
  Transmission Date: 20240109
  Serious: Yes (Death, Hospitalization, Other)
  Sender: FDA-Public Use
  Company Number: US-INTERCEPT-PM2023001835

PATIENT
  Sex: Female

DRUGS (1)
  1. OCALIVA [Suspect]
     Active Substance: OBETICHOLIC ACID
     Indication: Primary biliary cholangitis
     Dosage: 5 MILLIGRAM, QD
     Route: 048
     Dates: start: 20221029

REACTIONS (4)
  - Multiple organ dysfunction syndrome [Fatal]
  - Septic shock [Fatal]
  - Faecaloma [Unknown]
  - Failure to thrive [Unknown]

NARRATIVE: CASE EVENT DATE: 20230101
